FAERS Safety Report 8567170 (Version 1)
Quarter: 2012Q4

REPORT INFORMATION
  Report Type: 
  Country: US (occurrence: US)
  Receive Date: 20120830
  Receipt Date: 20120830
  Transmission Date: 20130627
  Serious: Yes (Death)
  Sender: FDA-Public Use
  Company Number: US-GLAXOSMITHKLINE-A0969019A

PATIENT
  Age: 84 Year
  Sex: Male

DRUGS (1)
  1. VOTRIENT [Suspect]
     Indication: RENAL CANCER
     Dosage: 800MG Per day
     Route: 048

REACTIONS (3)
  - Drug ineffective [Unknown]
  - Disease progression [Unknown]
  - Death [Fatal]
